FAERS Safety Report 8519132-1 (Version None)
Quarter: 2012Q3

REPORT INFORMATION
  Report Type: 
  Country: None (occurrence: None)
  Receive Date: 20120718
  Receipt Date: 20120711
  Transmission Date: 20120928
  Serious: Yes (Hospitalization)
  Sender: FDA-Public Use
  Company Number: US-US-EMD SERONO, INC.-7146915

PATIENT
  Sex: Female

DRUGS (4)
  1. REBIF [Suspect]
     Dates: start: 20120301
  2. ALBUTEROL [Concomitant]
     Indication: ASTHMA
  3. ASMANEX INHALER [Concomitant]
     Indication: ASTHMA
  4. REBIF [Suspect]
     Indication: PRODUCT USED FOR UNKNOWN INDICATION
     Dates: start: 20120114, end: 20120201

REACTIONS (1)
  - PNEUMONIA [None]
